FAERS Safety Report 7998248-2 (Version None)
Quarter: 2011Q4

REPORT INFORMATION
  Report Type: 
  Country: None (occurrence: None)
  Receive Date: 20111221
  Receipt Date: 20110517
  Transmission Date: 20120403
  Serious: No
  Sender: FDA-Public Use
  Company Number: US-GLAXOSMITHKLINE-A0927613A

PATIENT
  Age: 70 Year
  Sex: Male

DRUGS (15)
  1. PRAVASTATIN [Concomitant]
  2. ATENOLOL [Concomitant]
  3. BUSPAR [Concomitant]
  4. PLAVIX [Concomitant]
  5. TAMSULOSIN HCL [Concomitant]
  6. STEROIDS [Suspect]
     Indication: DERMATITIS CONTACT
     Route: 065
  7. METFORMIN HCL [Concomitant]
  8. LOVAZA [Suspect]
     Indication: PRODUCT USED FOR UNKNOWN INDICATION
     Dosage: 4CAP PER DAY
     Route: 048
     Dates: start: 20080101
  9. FINASTERIDE [Concomitant]
  10. COUMADIN [Concomitant]
  11. CINNAMON [Concomitant]
  12. ISOSORBIDE DINITRATE [Concomitant]
  13. NITROGLYCERIN [Concomitant]
  14. LEVOTHYROXINE SODIUM [Concomitant]
  15. COENZYME Q10 [Concomitant]

REACTIONS (3)
  - MEDICATION RESIDUE [None]
  - THERAPEUTIC RESPONSE DECREASED [None]
  - PRODUCT QUALITY ISSUE [None]
